FAERS Safety Report 8200213-7 (Version None)
Quarter: 2012Q1

REPORT INFORMATION
  Report Type: 
  Country: None (occurrence: None)
  Receive Date: 20120309
  Receipt Date: 20120309
  Transmission Date: 20120608
  Serious: Yes (Life-Threatening, Hospitalization, Disabling, Other)
  Sender: FDA-Public Use
  Company Number: None

PATIENT
  Sex: Male
  Weight: 100.6985 kg

DRUGS (2)
  1. HALDOL [Suspect]
     Dosage: 1/ST INJEC
     Dates: start: 19860101, end: 19870101
  2. PROLIXIN [Suspect]
     Dosage: 2 TIMES INJECT
     Dates: start: 19870101

REACTIONS (2)
  - PARALYSIS [None]
  - MEDICATION ERROR [None]
